FAERS Safety Report 14604122 (Version 1)
Quarter: 2018Q1

REPORT INFORMATION
  Report Type: Spontaneous
  Country: US (occurrence: US)
  Receive Date: 20180305
  Receipt Date: 20180305
  Transmission Date: 20180509
  Serious: Yes (Hospitalization)
  Sender: FDA-Public Use
  Company Number: None

PATIENT
  Sex: Male

DRUGS (6)
  1. PANTOPRAZOLE TAB 20MG [Concomitant]
  2. TRAMADOL HCL TAB 50MG [Concomitant]
  3. CLOTRIM/BETA CRE DIPROP [Concomitant]
  4. DICYCLOMINE CAP 10MG [Concomitant]
  5. HUMIRA [Suspect]
     Active Substance: ADALIMUMAB
     Indication: CROHN^S DISEASE
     Dosage: ?          OTHER FREQUENCY:EVERY OTHER WEEK;?
     Route: 058
     Dates: start: 20171024
  6. DESENEX CRE 1% [Concomitant]

REACTIONS (1)
  - Diverticulitis [None]
